FAERS Safety Report 4996818-7 (Version None)
Quarter: 2006Q2

REPORT INFORMATION
  Report Type: 
  Country: None (occurrence: None)
  Receive Date: 20060509
  Receipt Date: 20060117
  Transmission Date: 20061013
  Serious: Yes (Hospitalization, Congenital Anomaly, Other)
  Sender: FDA-Public Use
  Company Number: US-MERCK-0601USA01955

PATIENT
  Age: 69 Year
  Sex: Female

DRUGS (10)
  1. VIOXX [Suspect]
     Route: 048
     Dates: start: 20010515, end: 20040930
  2. VIOXX [Suspect]
     Route: 048
     Dates: start: 20010515, end: 20040930
  3. LIPITOR [Concomitant]
     Route: 065
  4. CELEXA [Concomitant]
     Route: 065
  5. CLARITIN [Concomitant]
     Route: 065
  6. NASACORT [Concomitant]
     Route: 065
  7. CALCIUM (UNSPECIFIED) [Concomitant]
     Route: 065
  8. VITAMINS (UNSPECIFIED) [Concomitant]
     Route: 065
  9. ASPIRIN [Concomitant]
     Route: 065
  10. COUMADIN [Suspect]
     Route: 065

REACTIONS (15)
  - ALOPECIA [None]
  - ANAEMIA [None]
  - BASAL CELL CARCINOMA [None]
  - CATARACT [None]
  - DEEP VEIN THROMBOSIS [None]
  - FIBROCYSTIC BREAST DISEASE [None]
  - FOOT FRACTURE [None]
  - LUNG NEOPLASM [None]
  - MYOCARDIAL INFARCTION [None]
  - OEDEMA PERIPHERAL [None]
  - POLYMYALGIA RHEUMATICA [None]
  - PULMONARY EMBOLISM [None]
  - RETROPERITONEAL HAEMATOMA [None]
  - VENOUS THROMBOSIS [None]
  - WEIGHT INCREASED [None]
